FAERS Safety Report 8622096-3 (Version None)
Quarter: 2012Q3

REPORT INFORMATION
  Report Type: 
  Country: None (occurrence: None)
  Receive Date: 20120826
  Receipt Date: 20120816
  Transmission Date: 20120928
  Serious: Yes (Life-Threatening)
  Sender: FDA-Public Use
  Company Number: GB-TEVA-355037ISR

PATIENT
  Age: 69 Year
  Sex: Male

DRUGS (13)
  1. ALLOPURINOL [Concomitant]
     Dosage: AT NIGHT.
     Route: 050
     Dates: start: 20111231
  2. OLANZAPINE [Suspect]
     Route: 048
  3. ASPIRIN [Concomitant]
     Route: 050
     Dates: start: 20120101
  4. TAMSULOSIN HCL [Concomitant]
     Dosage: AT NIGHT.
     Route: 048
     Dates: start: 20120101
  5. ATENOLOL [Concomitant]
     Route: 050
     Dates: start: 20120101
  6. OLANZAPINE [Suspect]
     Indication: AGITATION
     Route: 048
     Dates: start: 20120720
  7. ATORVASTATIN [Concomitant]
     Dosage: AT NIGHT
     Route: 050
     Dates: start: 20120101
  8. FLUOXETINE HCL [Concomitant]
     Route: 050
     Dates: start: 20120727
  9. RANITIDINE [Concomitant]
     Route: 050
     Dates: start: 20120716
  10. FUROSEMIDE [Concomitant]
     Dosage: VARIABLE
     Dates: start: 20120727
  11. METFORMIN HCL [Concomitant]
     Route: 050
     Dates: start: 20120101
  12. RAMIPRIL [Concomitant]
     Route: 050
     Dates: start: 20120101
  13. AMLODIPINE [Concomitant]
     Route: 050
     Dates: start: 20120101

REACTIONS (3)
  - ACUTE MYOCARDIAL INFARCTION [None]
  - MYOCARDIAL INFARCTION [None]
  - VENTRICULAR TACHYCARDIA [None]
